FAERS Safety Report 5728562-2 (Version None)
Quarter: 2008Q2

REPORT INFORMATION
  Report Type: 
  Country: None (occurrence: None)
  Receive Date: 20080430
  Receipt Date: 20080424
  Transmission Date: 20081010
  Serious: Yes (Death, Hospitalization)
  Sender: FDA-Public Use
  Company Number: 2007SP019631

PATIENT
  Age: 54 Year
  Sex: Male

DRUGS (12)
  1. TEMODAL [Suspect]
     Indication: GLIOBLASTOMA MULTIFORME
     Dosage: 160 MG; QD; PO
     Route: 048
     Dates: start: 20070725, end: 20070823
  2. BETAMETHASONE [Concomitant]
  3. SUCRALPHATE [Concomitant]
  4. ACETAMINOPHEN [Concomitant]
  5. ZOPIKLON [Concomitant]
  6. ONDANSETRON [Concomitant]
  7. CIPROFLOXACIN HCL [Concomitant]
  8. FLUCONAZOLE [Concomitant]
  9. ACYCLOVIR [Concomitant]
  10. MEROPENEM [Concomitant]
  11. NEUPOGEN [Concomitant]
  12. SULFAMETHOXAZOLE AND TRIMETHOPRIM DOUBLE STRENGTH [Concomitant]

REACTIONS (5)
  - APLASTIC ANAEMIA [None]
  - DISEASE PROGRESSION [None]
  - LEUKOPENIA [None]
  - PANCYTOPENIA [None]
  - THROMBOCYTOPENIA [None]
